FAERS Safety Report 9072203 (Version 1)
Quarter: 2013Q1

REPORT INFORMATION
  Report Type: Report from Study
  Country: US (occurrence: US)
  Receive Date: 20130129
  Receipt Date: 20130129
  Transmission Date: 20140127
  Serious: No
  Sender: FDA-Public Use
  Company Number: US-ABBOTT-12P-163-0924340-00

PATIENT
  Age: 57 Year
  Sex: Male

DRUGS (6)
  1. HUMIRA 40 MG/0.8 ML PEN [Suspect]
     Indication: CROHN^S DISEASE
     Dates: start: 20120409, end: 20120409
  2. HUMIRA 40 MG/0.8 ML PEN [Suspect]
     Dates: start: 20120410, end: 20120410
  3. HUMIRA 40 MG/0.8 ML PEN [Suspect]
  4. HYDROCODONE [Concomitant]
     Indication: PAIN
     Dosage: 10 MG X 1 TAB EVERY 4-6 HOURS AS REQUIRED
  5. B-12 [Concomitant]
     Indication: PRODUCT USED FOR UNKNOWN INDICATION
     Route: 050
  6. MULTI-VITAMIN [Concomitant]
     Indication: VITAMIN SUPPLEMENTATION

REACTIONS (2)
  - Headache [Recovered/Resolved]
  - Headache [Recovered/Resolved]
